FAERS Safety Report 5235405-2 (Version None)
Quarter: 2007Q1

REPORT INFORMATION
  Report Type: 
  Country: None (occurrence: None)
  Receive Date: 20070212
  Receipt Date: 20070130
  Transmission Date: 20070707
  Serious: Yes (Other)
  Sender: FDA-Public Use
  Company Number: PHEH2006US08763

PATIENT
  Age: 77 Year
  Sex: Female

DRUGS (6)
  1. EXJADE [Suspect]
     Indication: MYELODYSPLASTIC SYNDROME
     Dosage: 1250 MG, QD
     Route: 048
     Dates: start: 20060201
  2. THALIDOMIDE [Concomitant]
  3. DESFERAL [Concomitant]
  4. PRILOSEC [Concomitant]
  5. REVLIMID [Concomitant]
     Dosage: 10 MG, QOD
  6. COUMADIN [Concomitant]
     Dosage: 1 MG, UNK

REACTIONS (5)
  - MACULAR DEGENERATION [None]
  - PHOTOPHOBIA [None]
  - RETINAL PIGMENT EPITHELIOPATHY [None]
  - VISION BLURRED [None]
  - VISUAL ACUITY REDUCED [None]
